FAERS Safety Report 25941903 (Version 1)
Quarter: 2025Q4

REPORT INFORMATION
  Report Type: Spontaneous
  Country: US (occurrence: None)
  Receive Date: 20251020
  Receipt Date: 20251020
  Transmission Date: 20260117
  Serious: No
  Sender: FDA-CTU
  Company Number: None

PATIENT
  Sex: Female

DRUGS (1)
  1. COSENTYX [Suspect]
     Active Substance: SECUKINUMAB
     Indication: Psoriasis
     Dosage: 300 MG/ML EVERY 4 WEEKS SUBCUTANEOUS
     Route: 058
     Dates: start: 20250131

REACTIONS (4)
  - Weight decreased [None]
  - Back pain [None]
  - Abdominal pain [None]
  - Nausea [None]
